FAERS Safety Report 11684874 (Version 1)
Quarter: 2015Q4

REPORT INFORMATION
  Report Type: Spontaneous
  Country: JP (occurrence: JP)
  Receive Date: 20151030
  Receipt Date: 20151030
  Transmission Date: 20160304
  Serious: No
  Sender: FDA-Public Use
  Company Number: JP-GLENMARK PHARMACEUTICALS INC, USA.-2014GMK011169

PATIENT
  Sex: Male

DRUGS (3)
  1. CARVEDILOL. [Suspect]
     Active Substance: CARVEDILOL
     Dosage: UNK
  2. PILSICAINIDE [Suspect]
     Active Substance: PILSICAINIDE
     Dosage: UNK
  3. ENALAPRIL [Suspect]
     Active Substance: ENALAPRIL
     Dosage: UNK

REACTIONS (1)
  - Hypotension [Recovering/Resolving]
